FAERS Safety Report 24911296 (Version 1)
Quarter: 2025Q1

REPORT INFORMATION
  Report Type: Spontaneous
  Country: FR (occurrence: FR)
  Receive Date: 20250131
  Receipt Date: 20250131
  Transmission Date: 20250408
  Serious: Yes (Other)
  Sender: MYLAN
  Company Number: None

PATIENT
  Age: 47 Year
  Sex: Male
  Weight: 66 kg

DRUGS (2)
  1. DOXYCYCLINE [Suspect]
     Active Substance: DOXYCYCLINE
     Indication: Whipple^s disease
     Dosage: 200 MILLIGRAM, QD
     Route: 048
     Dates: start: 20151120
  2. PLAQUENIL [Suspect]
     Active Substance: HYDROXYCHLOROQUINE SULFATE
     Indication: Whipple^s disease
     Dosage: 3 DOSAGE FORM, QD
     Route: 048
     Dates: start: 20151120

REACTIONS (1)
  - Dilated cardiomyopathy [Not Recovered/Not Resolved]

NARRATIVE: CASE EVENT DATE: 20170529
